FAERS Safety Report 13775537 (Version 4)
Quarter: 2017Q3

REPORT INFORMATION
  Report Type: Spontaneous
  Country: DE (occurrence: DE)
  Receive Date: 20170721
  Receipt Date: 20170814
  Transmission Date: 20171127
  Serious: Yes (Disabling, Congenital Anomaly, Other)
  Sender: FDA-Public Use
  Company Number: DE-009507513-1707DEU006418

PATIENT
  Sex: Male

DRUGS (2)
  1. FOLIO [Concomitant]
     Active Substance: FOLIC ACID
     Dosage: UNK
     Route: 064
  2. IMPLANON [Suspect]
     Active Substance: ETONOGESTREL
     Dosage: UNK
     Route: 064

REACTIONS (7)
  - Foetal exposure during pregnancy [Unknown]
  - Intellectual disability [Unknown]
  - Heart disease congenital [Unknown]
  - Disability [Unknown]
  - Congenital cardiovascular anomaly [Unknown]
  - Pulmonary malformation [Unknown]
  - Umbilical cord abnormality [Unknown]

NARRATIVE: CASE EVENT DATE: 2017
